FAERS Safety Report 7636743-6 (Version None)
Quarter: 2011Q3

REPORT INFORMATION
  Report Type: 
  Country: None (occurrence: None)
  Receive Date: 20110722
  Receipt Date: 20110722
  Transmission Date: 20111222
  Serious: Yes (Death)
  Sender: FDA-Public Use
  Company Number: None

PATIENT
  Age: 19 Year
  Sex: Male
  Weight: 54.4316 kg

DRUGS (2)
  1. KLONOPIN [Suspect]
     Indication: DEPRESSION
     Dosage: .5 MG 2-3 QD PRN MOUTH
     Route: 048
     Dates: start: 20110203, end: 20110226
  2. PRISTIQ [Suspect]
     Indication: DEPRESSION
     Dosage: 50 MG 1 QD MOUTH
     Route: 048
     Dates: start: 20110203, end: 20110226

REACTIONS (1)
  - COMPLETED SUICIDE [None]
